FAERS Safety Report 10420756 (Version 1)
Quarter: 2014Q3

REPORT INFORMATION
  Report Type: Spontaneous
  Country: US (occurrence: None)
  Receive Date: 20140708
  Receipt Date: 20140708
  Transmission Date: 20150326
  Serious: Yes (Other)
  Sender: FDA-Public Use
  Company Number: 1285867

PATIENT
  Age: 8 Year
  Sex: Female

DRUGS (3)
  1. TRILEPTAL [Concomitant]
     Active Substance: OXCARBAZEPINE
  2. LAMICTAL [Concomitant]
     Active Substance: LAMOTRIGINE
  3. NIX [Suspect]
     Active Substance: PERMETHRIN
     Indication: LICE INFESTATION
     Dosage: APPLIED TOPICALLY X6
     Route: 061
     Dates: start: 20130901, end: 20130911

REACTIONS (2)
  - Dry skin [None]
  - Pruritus [None]
